FAERS Safety Report 9278695 (Version 3)
Quarter: 2013Q2

REPORT INFORMATION
  Report Type: Spontaneous
  Country: FR (occurrence: None)
  Receive Date: 20130503
  Receipt Date: 20130628
  Transmission Date: 20140414
  Serious: Yes (Death)
  Sender: FDA-Public Use
  Company Number: 2013-1885

PATIENT
  Age: 10 Month
  Sex: Male
  Weight: 9 kg

DRUGS (3)
  1. INCRELEX [Suspect]
     Indication: AUTOSOMAL CHROMOSOME ANOMALY
     Dosage: (8 UNITS,3 IN 1 D)
     Route: 058
     Dates: start: 20120924, end: 20121021
  2. INCRELEX [Suspect]
     Indication: OFF LABEL USE
     Dosage: (8 UNITS,3 IN 1 D)
     Route: 058
     Dates: start: 20120924, end: 20121021
  3. AVLOCARDYL (PROPRANOLOL) [Concomitant]

REACTIONS (8)
  - Disease progression [None]
  - Drug administered to patient of inappropriate age [None]
  - Growth retardation [None]
  - Endocrine disorder [None]
  - Cachexia [None]
  - Low set ears [None]
  - Congenital anomaly [None]
  - Off label use [None]
